FAERS Safety Report 15736028 (Version 2)
Quarter: 2018Q4

REPORT INFORMATION
  Report Type: Spontaneous
  Country: EE (occurrence: EE)
  Receive Date: 20181218
  Receipt Date: 20181228
  Transmission Date: 20190205
  Serious: Yes (Hospitalization)
  Sender: FDA-Public Use
  Company Number: PHHY2018EE185072

PATIENT
  Sex: Male

DRUGS (2)
  1. SECUKINUMAB. [Suspect]
     Active Substance: SECUKINUMAB
     Indication: PRODUCT USED FOR UNKNOWN INDICATION
     Dosage: UNK
     Route: 065
  2. HUMIRA [Suspect]
     Active Substance: ADALIMUMAB
     Indication: PSORIASIS
     Dosage: 40 MG, UNK
     Route: 058
     Dates: start: 2012, end: 201808

REACTIONS (6)
  - Intervertebral discitis [Recovering/Resolving]
  - Bone abscess [Unknown]
  - Rash [Unknown]
  - Staphylococcal infection [Unknown]
  - Spinal column stenosis [Unknown]
  - Extradural abscess [Unknown]

NARRATIVE: CASE EVENT DATE: 2018
